FAERS Safety Report 5542480-4 (Version None)
Quarter: 2007Q4

REPORT INFORMATION
  Report Type: 
  Country: None (occurrence: None)
  Receive Date: 20071129
  Receipt Date: 20070604
  Transmission Date: 20080405
  Serious: Yes (Other)
  Sender: FDA-Public Use
  Company Number: US200703005678

PATIENT
  Age: 41 Year
  Sex: Male
  Weight: 95.2 kg

DRUGS (6)
  1. ZYPREXA [Suspect]
     Indication: SCHIZOPHRENIA
     Dosage: 15 MG, DAILY (1/D)
     Dates: start: 19970801, end: 20010101
  2. OLANZAPINE [Suspect]
     Indication: SCHIZOPHRENIA
     Dosage: 20 MG, DAILY (1/D) : 40 MG, DAILY (1/D)
     Dates: start: 20040101, end: 20070131
  3. OLANZAPINE [Suspect]
     Indication: SCHIZOPHRENIA
     Dosage: 20 MG, DAILY (1/D) : 40 MG, DAILY (1/D)
     Dates: start: 20040101, end: 20070131
  4. QUETIAPINE [Concomitant]
  5. PROPRANOLOL [Concomitant]
  6. TRIAMCINOLONE [Concomitant]

REACTIONS (4)
  - DIABETES MELLITUS [None]
  - METABOLIC DISORDER [None]
  - OVERDOSE [None]
  - PANCREATITIS [None]
